FAERS Safety Report 12365644 (Version 28)
Quarter: 2018Q2

REPORT INFORMATION
  Report Type: Spontaneous
  Country: CA (occurrence: CA)
  Receive Date: 20160513
  Receipt Date: 20180620
  Transmission Date: 20180711
  Serious: Yes (Hospitalization, Other)
  Sender: FDA-Public Use
  Company Number: CA-ROCHE-1756124

PATIENT
  Age: 67 Year
  Sex: Female

DRUGS (26)
  1. XOLAIR [Suspect]
     Active Substance: OMALIZUMAB
     Indication: ASTHMA
     Dosage: 300 MG, BIW
     Route: 058
     Dates: start: 20080723
  2. XOLAIR [Suspect]
     Active Substance: OMALIZUMAB
     Dosage: UNK
     Route: 058
     Dates: start: 20160511
  3. XOLAIR [Suspect]
     Active Substance: OMALIZUMAB
     Dosage: UNK
     Route: 058
     Dates: start: 20160726
  4. XOLAIR [Suspect]
     Active Substance: OMALIZUMAB
     Dosage: UNK
     Route: 058
     Dates: start: 20161124
  5. XOLAIR [Suspect]
     Active Substance: OMALIZUMAB
     Dosage: UNK
     Route: 058
     Dates: start: 20180607
  6. CORTISONE [Suspect]
     Active Substance: CORTISONE\HYDROCORTISONE
     Indication: BACK PAIN
     Dosage: UNK
     Route: 008
     Dates: start: 20131128
  7. CORTISONE [Suspect]
     Active Substance: CORTISONE\HYDROCORTISONE
     Indication: PNEUMONITIS
     Dosage: 2 DF, UNK
     Route: 065
     Dates: start: 20141023
  8. XOLAIR [Suspect]
     Active Substance: OMALIZUMAB
     Dosage: UNK
     Route: 058
     Dates: start: 20160712
  9. XOLAIR [Suspect]
     Active Substance: OMALIZUMAB
     Dosage: UNK
     Route: 058
     Dates: start: 20160809
  10. METHOTREXATE. [Concomitant]
     Active Substance: METHOTREXATE
  11. XOLAIR [Suspect]
     Active Substance: OMALIZUMAB
     Dosage: UNK
     Route: 058
     Dates: start: 20140320
  12. XOLAIR [Suspect]
     Active Substance: OMALIZUMAB
     Dosage: UNK
     Route: 058
     Dates: start: 20161110
  13. XOLAIR [Suspect]
     Active Substance: OMALIZUMAB
     Dosage: UNK
     Route: 058
     Dates: start: 20170720
  14. XOLAIR [Suspect]
     Active Substance: OMALIZUMAB
     Dosage: UNK
     Route: 058
     Dates: start: 20160311
  15. XOLAIR [Suspect]
     Active Substance: OMALIZUMAB
     Dosage: UNK
     Route: 058
     Dates: start: 20160321
  16. XOLAIR [Suspect]
     Active Substance: OMALIZUMAB
     Dosage: UNK
     Route: 058
     Dates: start: 20160818
  17. XOLAIR [Suspect]
     Active Substance: OMALIZUMAB
     Dosage: 300 MG, BIW
     Route: 058
     Dates: start: 20090420
  18. CORTISONE [Suspect]
     Active Substance: CORTISONE\HYDROCORTISONE
     Indication: LUNG INFECTION
     Dosage: UNK
     Route: 008
     Dates: start: 20140129
  19. PREGABALINA [Concomitant]
     Active Substance: PREGABALIN
  20. XOLAIR [Suspect]
     Active Substance: OMALIZUMAB
     Dosage: UNK
     Route: 058
     Dates: start: 20160831
  21. XOLAIR [Suspect]
     Active Substance: OMALIZUMAB
     Dosage: UNK
     Route: 058
     Dates: start: 20161208
  22. XOLAIR [Suspect]
     Active Substance: OMALIZUMAB
     Dosage: UNK
     Route: 058
     Dates: start: 20171109
  23. XOLAIR [Suspect]
     Active Substance: OMALIZUMAB
     Dosage: UNK
     Route: 058
     Dates: start: 20180511
  24. CORTISONE [Suspect]
     Active Substance: CORTISONE\HYDROCORTISONE
     Dosage: 1 MG, UNK
     Route: 065
     Dates: start: 20161114
  25. XOLAIR [Suspect]
     Active Substance: OMALIZUMAB
     Dosage: 300 MG, EVERY 4 WEEKS
     Route: 058
  26. CORTISONE [Suspect]
     Active Substance: CORTISONE\HYDROCORTISONE
     Dosage: 15 MG, QD
     Route: 065

REACTIONS (23)
  - Dyspnoea [Unknown]
  - Lung infection [Recovered/Resolved]
  - Pain [Unknown]
  - Hypertension [Unknown]
  - Malaise [Unknown]
  - Arthritis [Not Recovered/Not Resolved]
  - Weight decreased [Unknown]
  - Nephrolithiasis [Unknown]
  - Blood pressure systolic increased [Unknown]
  - Asthenia [Unknown]
  - Musculoskeletal pain [Unknown]
  - Pain in extremity [Unknown]
  - Respiratory rate increased [Unknown]
  - Scratch [Unknown]
  - Intervertebral disc compression [Unknown]
  - Tendon rupture [Unknown]
  - Contusion [Unknown]
  - Sepsis [Recovering/Resolving]
  - Pneumonia [Recovering/Resolving]
  - Pneumonitis [Unknown]
  - Asthma [Unknown]
  - Heart rate increased [Unknown]
  - Hand deformity [Unknown]

NARRATIVE: CASE EVENT DATE: 20131127
